FAERS Safety Report 8538996-9 (Version None)
Quarter: 2012Q3

REPORT INFORMATION
  Report Type: 
  Country: None (occurrence: None)
  Receive Date: 20120726
  Receipt Date: 20120723
  Transmission Date: 20120928
  Serious: Yes (Other)
  Sender: FDA-Public Use
  Company Number: PHHO2012FR010938

PATIENT
  Sex: Female
  Weight: 58 kg

DRUGS (4)
  1. BIMATOPROST AND TIMOLOL MALEATE [Concomitant]
     Indication: GLAUCOMA
     Dosage: 1 DRP, QD
     Dates: start: 20080801
  2. TASIGNA [Suspect]
     Indication: CHRONIC MYELOID LEUKAEMIA
     Dosage: 300 MG, BID
     Route: 048
     Dates: start: 20101023
  3. ESOMEPRAZOLE [Concomitant]
     Indication: DUODENAL ULCER
     Dosage: 40 MG, QD
     Route: 048
     Dates: start: 20080901
  4. PERINDOPRIL ERBUMINE [Concomitant]
     Indication: HYPERTENSION
     Dosage: 2.8 MG, QD
     Route: 048
     Dates: start: 20110824

REACTIONS (1)
  - HEPATIC STEATOSIS [None]
